FAERS Safety Report 7536752-1 (Version None)
Quarter: 2011Q2

REPORT INFORMATION
  Report Type: 
  Country: None (occurrence: None)
  Receive Date: 20110609
  Receipt Date: 20110606
  Transmission Date: 20111010
  Serious: Yes (Death)
  Sender: FDA-Public Use
  Company Number: B0725153A

PATIENT
  Sex: Female
  Weight: 46 kg

DRUGS (6)
  1. THALIDOMIDE [Suspect]
     Indication: MULTIPLE MYELOMA
     Dosage: 100MG AT NIGHT
     Route: 048
     Dates: start: 20100318
  2. FENTANYL [Concomitant]
     Indication: BACK PAIN
     Dates: start: 20100415
  3. ZOLEDRONIC ACID [Concomitant]
     Dates: start: 20100415
  4. ENOXAPARIN [Concomitant]
     Dates: start: 20110415
  5. DEXAMETHASONE [Suspect]
     Dosage: 40MG WEEKLY
     Route: 065
     Dates: start: 20100419
  6. MELPHALAN HYDROCHLORIDE [Suspect]
     Dosage: 30MG THREE TIMES PER DAY
     Route: 065
     Dates: start: 20110127

REACTIONS (1)
  - PNEUMONIA [None]
